FAERS Safety Report 7024940-2 (Version None)
Quarter: 2010Q4

REPORT INFORMATION
  Report Type: 
  Country: None (occurrence: None)
  Receive Date: 20101001
  Receipt Date: 20081205
  Transmission Date: 20110411
  Serious: Yes (Death, Hospitalization)
  Sender: FDA-Public Use
  Company Number: US-SANOFI-AVENTIS-200711249GDDC

PATIENT
  Age: 68 Year
  Sex: Female
  Weight: 53.1 kg

DRUGS (16)
  1. DOCETAXEL [Suspect]
     Route: 042
     Dates: start: 20070117, end: 20070117
  2. DOCETAXEL [Suspect]
     Route: 042
     Dates: start: 20061117, end: 20061117
  3. OXALIPLATIN [Suspect]
     Route: 042
     Dates: start: 20070117, end: 20070117
  4. OXALIPLATIN [Suspect]
     Route: 042
     Dates: start: 20061117, end: 20061117
  5. BEVACIZUMAB [Suspect]
     Route: 042
     Dates: start: 20070117, end: 20070117
  6. MONTELUKAST SODIUM [Concomitant]
     Dosage: DOSE AS USED: UNK
  7. DEXAMETHASONE [Concomitant]
     Dosage: DOSE AS USED: UNK
  8. FLUCONAZOLE [Concomitant]
     Dosage: DOSE AS USED: UNK
  9. ATIVAN [Concomitant]
     Dosage: DOSE AS USED: UNK
  10. PROCHLORPERAZINE [Concomitant]
     Dosage: DOSE AS USED: UNK
  11. BENADRYL [Concomitant]
     Dosage: DOSE AS USED: UNK
  12. LISINOPRIL [Concomitant]
     Dosage: DOSE AS USED: UNK
  13. ATROPINE W/DIPHENOXYLATE [Concomitant]
     Dosage: DOSE AS USED: UNK
     Dates: start: 20070124, end: 20070124
  14. ONDANSETRON [Concomitant]
     Dosage: DOSE AS USED: UNK
     Dates: start: 20070123, end: 20070125
  15. SODIUM BICARBONATE [Concomitant]
     Dosage: DOSE AS USED: UNK
     Dates: start: 20070131, end: 20070201
  16. MAGNESIUM SULFATE [Concomitant]
     Dosage: DOSE AS USED: UNK
     Dates: start: 20070131, end: 20070201

REACTIONS (3)
  - ABDOMINAL PAIN [None]
  - PNEUMONIA [None]
  - SEPSIS [None]
